FAERS Safety Report 16911474 (Version 1)
Quarter: 2019Q4

REPORT INFORMATION
  Report Type: Spontaneous
  Country: US (occurrence: US)
  Receive Date: 20191013
  Receipt Date: 20191013
  Transmission Date: 20200122
  Serious: No
  Sender: FDA-Public Use
  Company Number: US-C B FLEET CO INC-201810-US-002416

PATIENT
  Sex: Female

DRUGS (1)
  1. MONISTAT 1 COMBINATION PACK TRIPLE ACTION [Suspect]
     Active Substance: MICONAZOLE NITRATE
     Indication: PRODUCT USED FOR UNKNOWN INDICATION
     Dosage: 1200MG
     Route: 067
     Dates: start: 20180821, end: 20180821

REACTIONS (7)
  - Vulvovaginal swelling [Unknown]
  - Vaginal exfoliation [Unknown]
  - Vulvovaginal discomfort [Unknown]
  - Chemical burn of skin [Unknown]
  - Hypersensitivity [Unknown]
  - Vulvovaginal burning sensation [Unknown]
  - Vulvovaginal pain [Unknown]

NARRATIVE: CASE EVENT DATE: 20180821
